FAERS Safety Report 7088931-8 (Version None)
Quarter: 2010Q4

REPORT INFORMATION
  Report Type: 
  Country: None (occurrence: None)
  Receive Date: 20101108
  Receipt Date: 20101028
  Transmission Date: 20110411
  Serious: Yes (Other)
  Sender: FDA-Public Use
  Company Number: PHHY2010US62471

PATIENT
  Sex: Male

DRUGS (2)
  1. VALTURNA [Suspect]
  2. KLOR-CON [Concomitant]

REACTIONS (1)
  - BLOOD PRESSURE INCREASED [None]
